FAERS Safety Report 9022045 (Version 1)
Quarter: 2013Q1

REPORT INFORMATION
  Report Type: Spontaneous
  Country: FR (occurrence: FR)
  Receive Date: 20130118
  Receipt Date: 20130118
  Transmission Date: 20140127
  Serious: Yes (Hospitalization)
  Sender: FDA-Public Use
  Company Number: FR-PFIZER INC-2013001928

PATIENT
  Age: 39 Year
  Sex: Female

DRUGS (6)
  1. LYRICA [Suspect]
     Dosage: 500 MG,DAILY
  2. CYMBALTA [Suspect]
     Dosage: 60 MG, 1X/DAY
     Route: 048
  3. XANAX [Concomitant]
     Dosage: 0.5 MG, 3X/DAY
  4. MONOALGIC [Concomitant]
     Dosage: 200 MG, 1X/DAY
     Dates: start: 201203
  5. IXPRIM [Concomitant]
  6. VOLTARENE [Concomitant]

REACTIONS (4)
  - Sinus tachycardia [Recovered/Resolved]
  - Dyspnoea [Recovered/Resolved]
  - Asthenia [Recovered/Resolved]
  - Night sweats [Recovered/Resolved]
